FAERS Safety Report 6109213-4 (Version None)
Quarter: 2009Q1

REPORT INFORMATION
  Report Type: 
  Country: None (occurrence: None)
  Receive Date: 20090310
  Receipt Date: 20090227
  Transmission Date: 20090719
  Serious: Yes (Other)
  Sender: FDA-Public Use
  Company Number: PHHY2008BR18855

PATIENT
  Sex: Female
  Weight: 65 kg

DRUGS (7)
  1. TEGRETOL [Suspect]
     Indication: EPILEPSY
     Dosage: 1 TABLET AT NIGHT
     Route: 048
  2. TEGRETOL [Suspect]
     Dosage: 100 MG, UNK
  3. TEGRETOL [Suspect]
     Dosage: 2 TABLETS
     Route: 048
     Dates: start: 20090227
  4. RIVOTRIL [Concomitant]
     Indication: CONVULSION
     Dosage: 2 TABLETS DAILY
     Route: 048
  5. PHENOBARBITAL TAB [Concomitant]
     Indication: CONVULSION
     Dosage: 100 MG
     Route: 048
  6. DIAZEPAM [Concomitant]
     Indication: CONVULSION
     Dosage: 3 TABLETS AT NIGHT
     Route: 048
  7. FLUNARIZINE [Concomitant]
     Indication: DIZZINESS
     Dosage: 1 TABLET DAILY
     Route: 048

REACTIONS (7)
  - ASTHENIA [None]
  - FALL [None]
  - INCORRECT DOSE ADMINISTERED [None]
  - INSOMNIA [None]
  - NERVOUSNESS [None]
  - PAIN [None]
  - TREMOR [None]
